FAERS Safety Report 8219018-6 (Version None)
Quarter: 2012Q1

REPORT INFORMATION
  Report Type: 
  Country: None (occurrence: None)
  Receive Date: 20120319
  Receipt Date: 20120309
  Transmission Date: 20120608
  Serious: Yes (Other)
  Sender: FDA-Public Use
  Company Number: US-VERTEX PHARMACEUTICALS INC.-AE-2012-003408

PATIENT
  Sex: Male

DRUGS (3)
  1. PEG-INTRON [Concomitant]
     Indication: HEPATITIS C
     Dates: start: 20120210
  2. RIBAVIRIN [Concomitant]
     Indication: HEPATITIS C
     Dates: start: 20120210
  3. INCIVEK [Suspect]
     Indication: HEPATITIS C
     Dates: start: 20120210

REACTIONS (4)
  - SELF-INJURIOUS IDEATION [None]
  - HYPERSOMNIA [None]
  - NAUSEA [None]
  - DECREASED APPETITE [None]
